FAERS Safety Report 23841496 (Version 1)
Quarter: 2024Q2

REPORT INFORMATION
  Report Type: Spontaneous
  Country: US (occurrence: None)
  Receive Date: 20240509
  Receipt Date: 20240509
  Transmission Date: 20240715
  Serious: Yes (Hospitalization, Disabling, Other)
  Sender: FDA-Public Use
  Company Number: None

PATIENT
  Age: 29 Year
  Sex: Female
  Weight: 92.25 kg

DRUGS (2)
  1. SEMAGLUTIDE [Suspect]
     Active Substance: SEMAGLUTIDE
     Indication: Weight decreased
     Dates: start: 20231013, end: 20240227
  2. ATORVASTATIN [Concomitant]

REACTIONS (4)
  - Drug ineffective [None]
  - Product quality issue [None]
  - Pain [None]
  - Ovarian cystectomy [None]

NARRATIVE: CASE EVENT DATE: 20240130
